FAERS Safety Report 23612170 (Version 1)
Quarter: 2024Q1

REPORT INFORMATION
  Report Type: Spontaneous
  Country: FR (occurrence: FR)
  Receive Date: 20240308
  Receipt Date: 20240308
  Transmission Date: 20240410
  Serious: Yes (Death, Other)
  Sender: FDA-Public Use
  Company Number: None

PATIENT
  Age: 88 Year
  Sex: Female
  Weight: 90 kg

DRUGS (4)
  1. TRAMADOL [Suspect]
     Active Substance: TRAMADOL\TRAMADOL HYDROCHLORIDE
     Indication: Pain
     Dosage: BASE
     Route: 048
     Dates: start: 20240109, end: 20240111
  2. MORPHINE SULFATE [Interacting]
     Active Substance: MORPHINE SULFATE
     Indication: Pain
     Dosage: TIME INTERVAL: 1 AS NECESSARY: 5MG EVERY 4 HOURS, IF NECESSARY, 5 MG, CAPSULE
     Route: 048
     Dates: start: 20240112, end: 20240114
  3. SKENAN [Interacting]
     Active Substance: MORPHINE SULFATE
     Indication: Pain
     Dosage: L.P. 10 MG, PROLONGED RELEASE MICROGRANULES IN CAPSULE
     Route: 048
     Dates: start: 20240109, end: 20240111
  4. OXAZEPAM [Suspect]
     Active Substance: OXAZEPAM
     Indication: Anxiety
     Dosage: 5MG 3*/DAY, 10 MG, TABLET
     Route: 048
     Dates: start: 20240113, end: 20240113

REACTIONS (5)
  - Urinary retention [Not Recovered/Not Resolved]
  - Drug interaction [Fatal]
  - Somnolence [Not Recovered/Not Resolved]
  - Respiratory rate decreased [Fatal]
  - Overdose [Fatal]

NARRATIVE: CASE EVENT DATE: 20240112
